FAERS Safety Report 16469571 (Version 1)
Quarter: 2019Q3

REPORT INFORMATION
  Report Type: Spontaneous
  Country: US (occurrence: US)
  Receive Date: 20190622
  Receipt Date: 20190622
  Transmission Date: 20191004
  Serious: No
  Sender: FDA-Public Use
  Company Number: None

PATIENT
  Age: 51 Year
  Sex: Male
  Weight: 81 kg

DRUGS (2)
  1. ZYRTEC [Concomitant]
     Active Substance: CETIRIZINE HYDROCHLORIDE
  2. UP AND UP ANTIBIOTIC PLUS PAIN RELIEF [Suspect]
     Active Substance: BACITRACIN ZINC\NEOMYCIN SULFATE\POLYMYXIN B SULFATE\PRAMOXINE HYDROCHLORIDE
     Indication: INFECTION
     Route: 062
     Dates: start: 20190610, end: 20190612

REACTIONS (1)
  - Application site rash [None]

NARRATIVE: CASE EVENT DATE: 20190610
